FAERS Safety Report 18205554 (Version 1)
Quarter: 2020Q3

REPORT INFORMATION
  Report Type: Spontaneous
  Country: US (occurrence: US)
  Receive Date: 20200827
  Receipt Date: 20200827
  Transmission Date: 20201103
  Serious: No
  Sender: FDA-Public Use
  Company Number: US-STRONGBRIDGE BIOPHARMA-2020-STR-000207

PATIENT
  Sex: Female

DRUGS (1)
  1. KEVEYIS [Suspect]
     Active Substance: DICHLORPHENAMIDE
     Indication: FAMILIAL PERIODIC PARALYSIS
     Dosage: 12.5 MG, QD
     Route: 048
     Dates: start: 20180718

REACTIONS (4)
  - Gait disturbance [Recovering/Resolving]
  - Wrong technique in product usage process [Recovering/Resolving]
  - Asthenia [Recovering/Resolving]
  - Underdose [Recovering/Resolving]
